FAERS Safety Report 7298549-X (Version None)
Quarter: 2011Q1

REPORT INFORMATION
  Report Type: 
  Country: None (occurrence: None)
  Receive Date: 20110207
  Receipt Date: 20110127
  Transmission Date: 20110831
  Serious: Yes (Death)
  Sender: FDA-Public Use
  Company Number: CLOF-1000825

PATIENT
  Sex: Male

DRUGS (4)
  1. MELPHALAN HYDROCHLORIDE [Suspect]
     Indication: ACUTE LYMPHOCYTIC LEUKAEMIA
     Dosage: 70 MG/M2, QD, INTRAVENOUS
     Route: 042
  2. THIOTEPA [Suspect]
     Indication: ACUTE LYMPHOCYTIC LEUKAEMIA
     Dosage: 10 MG/KG, ONCE, INTRAVENOUS
     Route: 042
  3. TAROLIMUS (TACROLIMUS) [Concomitant]
  4. CLOFARABINE (CLOFARABINE) SOLUTION FOR INFUSION [Suspect]
     Indication: ACUTE LYMPHOCYTIC LEUKAEMIA
     Dosage: MG/M2, QDX5, INTRAVENOUS
     Route: 042

REACTIONS (1)
  - ACUTE LYMPHOCYTIC LEUKAEMIA RECURRENT [None]
